FAERS Safety Report 10038179 (Version 2)
Quarter: 2014Q2

REPORT INFORMATION
  Report Type: Spontaneous
  Country: US (occurrence: US)
  Receive Date: 20140326
  Receipt Date: 20140423
  Transmission Date: 20141212
  Serious: No
  Sender: FDA-Public Use
  Company Number: US-009507513-1403USA005907

PATIENT
  Sex: Female
  Weight: 106.58 kg

DRUGS (1)
  1. OXYTROL FOR WOMEN [Suspect]
     Indication: BLADDER DISORDER
     Dosage: UNK, UNKNOWN
     Route: 062

REACTIONS (4)
  - Application site burn [Recovering/Resolving]
  - Application site inflammation [Recovering/Resolving]
  - Rash [Recovered/Resolved]
  - Application site erythema [Recovering/Resolving]
